FAERS Safety Report 7998326-8 (Version None)
Quarter: 2011Q4

REPORT INFORMATION
  Report Type: 
  Country: None (occurrence: None)
  Receive Date: 20111221
  Receipt Date: 20110714
  Transmission Date: 20120403
  Serious: No
  Sender: FDA-Public Use
  Company Number: US-GLAXOSMITHKLINE-A0936835A

PATIENT
  Age: 78 Year
  Sex: Male

DRUGS (5)
  1. SYNTHROID [Concomitant]
  2. ASPIRIN [Concomitant]
  3. LOVAZA [Suspect]
     Indication: BLOOD TRIGLYCERIDES INCREASED
     Dosage: 2TAB TWICE PER DAY
     Route: 048
     Dates: start: 20090101
  4. HYZAAR [Concomitant]
  5. ZANTAC [Concomitant]

REACTIONS (1)
  - DYSGEUSIA [None]
